FAERS Safety Report 7523499-0 (Version None)
Quarter: 2011Q2

REPORT INFORMATION
  Report Type: 
  Country: None (occurrence: None)
  Receive Date: 20110525
  Receipt Date: 20110510
  Transmission Date: 20111010
  Serious: Yes (Other)
  Sender: FDA-Public Use
  Company Number: OSCN-NO-1105S-0121

PATIENT
  Age: 56 Year
  Sex: Male

DRUGS (1)
  1. OMNISCAN [Suspect]
     Indication: POST PROCEDURAL INFECTION
     Dosage: 15 ML, SINGLE DOSE
     Dates: start: 20051105, end: 20051105

REACTIONS (10)
  - MYALGIA [None]
  - MUSCULOSKELETAL STIFFNESS [None]
  - QUADRIPLEGIA [None]
  - CONDITION AGGRAVATED [None]
  - JOINT STIFFNESS [None]
  - SPINAL CORD COMPRESSION [None]
  - ARTHRALGIA [None]
  - SKIN DISCOLOURATION [None]
  - DISLOCATION OF VERTEBRA [None]
  - OEDEMA PERIPHERAL [None]
